FAERS Safety Report 11553629 (Version 1)
Quarter: 2015Q3

REPORT INFORMATION
  Report Type: Spontaneous
  Country: US (occurrence: None)
  Receive Date: 20150924
  Receipt Date: 20150924
  Transmission Date: 20151125
  Serious: Yes (Other)
  Sender: FDA-Public Use
  Company Number: None

PATIENT
  Age: 13 Year
  Sex: Female
  Weight: 94.8 kg

DRUGS (4)
  1. KINEVAC [Suspect]
     Active Substance: SINCALIDE
     Indication: NAUSEA
     Route: 042
     Dates: start: 20150921, end: 20150922
  2. KINEVAC [Suspect]
     Active Substance: SINCALIDE
     Indication: GALLBLADDER DISORDER
     Route: 042
     Dates: start: 20150921, end: 20150922
  3. CHOLETEC [Concomitant]
     Active Substance: TECHNETIUM TC-99M MEBROFENIN
  4. KINEVAC [Concomitant]
     Active Substance: SINCALIDE

REACTIONS (2)
  - Drug ineffective [None]
  - Product quality issue [None]

NARRATIVE: CASE EVENT DATE: 20150921
